FAERS Safety Report 14822037 (Version 9)
Quarter: 2022Q4

REPORT INFORMATION
  Report Type: Spontaneous
  Country: GB (occurrence: GB)
  Receive Date: 20180427
  Receipt Date: 20221012
  Transmission Date: 20230113
  Serious: Yes (Other)
  Sender: FDA-Public Use
  Company Number: None

PATIENT
  Age: 72 Year
  Sex: Male
  Weight: 93.2 kg

DRUGS (11)
  1. RAMIPRIL [Suspect]
     Active Substance: RAMIPRIL
     Indication: Hypertension
     Dosage: 10 MILLIGRAM DAILY; 10 MG,QD
     Route: 048
     Dates: start: 2005
  2. RAMIPRIL [Suspect]
     Active Substance: RAMIPRIL
     Dosage: 10 MILLIGRAM DAILY;
     Route: 048
     Dates: start: 20060123
  3. CRESTOR [Suspect]
     Active Substance: ROSUVASTATIN CALCIUM
     Indication: Blood cholesterol abnormal
     Dosage: 10 MILLIGRAM DAILY;
     Route: 048
     Dates: start: 20091208
  4. DAPAGLIFLOZIN [Suspect]
     Active Substance: DAPAGLIFLOZIN
     Indication: Type 2 diabetes mellitus
     Dosage: 10 MILLIGRAM
     Route: 065
     Dates: start: 20141117
  5. DAPAGLIFLOZIN [Suspect]
     Active Substance: DAPAGLIFLOZIN
     Indication: Fulminant type 1 diabetes mellitus
     Dosage: 10 MILLIGRAM(UNKNOWN/ALSO RECEIVED FROM 01-JAN-2015, 10 MG)
     Route: 048
     Dates: start: 20141117, end: 20150101
  6. DAPAGLIFLOZIN [Suspect]
     Active Substance: DAPAGLIFLOZIN
     Dosage: 10 MG, UNKNOWN
     Route: 048
     Dates: start: 20150101
  7. DAPAGLIFLOZIN [Suspect]
     Active Substance: DAPAGLIFLOZIN
     Dosage: 10 MILLIGRAM
     Route: 065
     Dates: start: 20150601
  8. AMLODIPINE [Concomitant]
     Active Substance: AMLODIPINE BESYLATE
     Indication: Hypertension
     Dosage: 10 MILLIGRAM DAILY;(CYCLICAL)
     Route: 065
     Dates: start: 20110719
  9. DOXAZOSIN [Concomitant]
     Active Substance: DOXAZOSIN MESYLATE
     Indication: Hypertension
     Dosage: 1 MILLIGRAM DAILY;(1 MG,QD)
     Route: 065
     Dates: start: 20070327
  10. ROSUVASTATIN [Concomitant]
     Active Substance: ROSUVASTATIN
     Indication: Blood cholesterol abnormal
     Dosage: 10 MILLIGRAM DAILY; (10 MG,QD)
     Route: 065
     Dates: start: 20091208
  11. TERBINAFINE [Concomitant]
     Active Substance: TERBINAFINE
     Indication: Onychomycosis
     Dosage: 100 MILLIGRAM
     Route: 048
     Dates: start: 20141218

REACTIONS (5)
  - Blood urine present [Unknown]
  - Haematuria [Unknown]
  - Prostatic haemorrhage [Unknown]
  - Polyuria [Unknown]
  - Weight decreased [Unknown]

NARRATIVE: CASE EVENT DATE: 20180201
